FAERS Safety Report 6576691-6 (Version None)
Quarter: 2010Q1

REPORT INFORMATION
  Report Type: 
  Country: None (occurrence: None)
  Receive Date: 20100210
  Receipt Date: 20100208
  Transmission Date: 20100710
  Serious: Yes (Hospitalization)
  Sender: FDA-Public Use
  Company Number: IT-ROCHE-676339

PATIENT
  Sex: Male

DRUGS (4)
  1. VESANOID [Suspect]
     Indication: ACUTE MYELOID LEUKAEMIA
     Dosage: FREQUENCY : DAILY
     Route: 048
     Dates: start: 20091008
  2. VESANOID [Suspect]
     Dosage: FREQUENCY: DAILY
     Route: 048
     Dates: start: 20091024, end: 20091026
  3. VESANOID [Suspect]
     Dosage: FREQUENCY: DAILY
     Route: 048
     Dates: start: 20091028, end: 20091113
  4. ZAVEDOS [Concomitant]
     Route: 042
     Dates: start: 20091012, end: 20091014

REACTIONS (2)
  - PANCYTOPENIA [None]
  - RETINOIC ACID SYNDROME [None]
